FAERS Safety Report 9717528 (Version 1)
Quarter: 2013Q4

REPORT INFORMATION
  Report Type: Spontaneous
  Country: US (occurrence: US)
  Receive Date: 20131127
  Receipt Date: 20131127
  Transmission Date: 20140711
  Serious: No
  Sender: FDA-Public Use
  Company Number: US-GILEAD-2009-0020851

PATIENT
  Sex: Female

DRUGS (16)
  1. LETAIRIS [Suspect]
     Indication: PULMONARY ARTERIAL HYPERTENSION
     Route: 048
     Dates: start: 20090225
  2. ASPIRIN [Concomitant]
  3. LASIX [Concomitant]
  4. ALDACTONE [Concomitant]
  5. ATENOLOL [Concomitant]
  6. ZOCOR [Concomitant]
  7. SINGULAIR [Concomitant]
  8. ADVAIR [Concomitant]
  9. KLOR-CON [Concomitant]
  10. COLCHICINE [Concomitant]
  11. SYNTHROID [Concomitant]
  12. PROTONIX [Concomitant]
  13. AMBIEN [Concomitant]
  14. VICODIN ES [Concomitant]
  15. LYRICA [Concomitant]
  16. CITALOPRAM HBR [Concomitant]

REACTIONS (4)
  - Dyspnoea [Unknown]
  - Palpitations [Unknown]
  - Fluid retention [Unknown]
  - Local swelling [Unknown]
